FAERS Safety Report 7982226-3 (Version None)
Quarter: 2011Q4

REPORT INFORMATION
  Report Type: 
  Country: None (occurrence: None)
  Receive Date: 20111214
  Receipt Date: 20111214
  Transmission Date: 20120403
  Serious: No
  Sender: FDA-Public Use
  Company Number: None

PATIENT
  Age: 81 Year
  Sex: Male
  Weight: 63.4 kg

DRUGS (1)
  1. VEMURAFENIB [Suspect]
     Indication: MALIGNANT MELANOMA
     Dosage: 960 MG BID PO
     Route: 048
     Dates: start: 20111128, end: 20111207

REACTIONS (6)
  - EARLY SATIETY [None]
  - ANGIOEDEMA [None]
  - ERYTHEMA [None]
  - RASH [None]
  - NAUSEA [None]
  - DYSPHAGIA [None]
